FAERS Safety Report 6193083-2 (Version None)
Quarter: 2009Q2

REPORT INFORMATION
  Report Type: 
  Country: None (occurrence: None)
  Receive Date: 20090514
  Receipt Date: 20090514
  Transmission Date: 20091009
  Serious: Yes (Other)
  Sender: FDA-Public Use
  Company Number: None

PATIENT
  Age: 49 Year
  Sex: Male

DRUGS (9)
  1. VANCOMYCIN [Suspect]
     Indication: PERITONEAL DIALYSIS
     Dosage: 500 MG, INTRAPERITONEAL
  2. VANCOMYCIN [Suspect]
     Indication: PERITONITIS
     Dosage: 500 MG, INTRAPERITONEAL
  3. (DIALVIT) [Concomitant]
  4. (CALCIDOL [Concomitant]
  5. (ATENOLOL) [Concomitant]
  6. ATORVASTATIN CALCIUM [Concomitant]
  7. RENAGEL [Concomitant]
  8. AMODIPINE [Concomitant]
  9. (SANDOCAL [Concomitant]

REACTIONS (3)
  - ANAPHYLACTIC REACTION [None]
  - FALL [None]
  - RESPIRATORY ARREST [None]
